FAERS Safety Report 9489946 (Version 2)
Quarter: 2013Q3

REPORT INFORMATION
  Report Type: Spontaneous
  Country: OM (occurrence: OM)
  Receive Date: 20130829
  Receipt Date: 20130904
  Transmission Date: 20140515
  Serious: Yes (Hospitalization, Other)
  Sender: FDA-Public Use
  Company Number: PHHY2013OM091112

PATIENT
  Age: 66 Year
  Sex: Female

DRUGS (7)
  1. DIGOXIN [Suspect]
     Dosage: 0.125 MG, QD
  2. SPIRONOLACTONE [Interacting]
     Dosage: 25 MG, QD
  3. FUROSEMIDE [Suspect]
     Dosage: 40 MG, BID
  4. LISINOPRIL [Concomitant]
     Dosage: 10 MG, QD
  5. CARVEDILOL [Concomitant]
     Dosage: 6.25 MG, BID
  6. METFORMIN [Concomitant]
     Dosage: UNK UKN, UNK
  7. CALCIUM [Concomitant]
     Dosage: UNK UKN, UNK

REACTIONS (10)
  - Supraventricular tachycardia [Not Recovered/Not Resolved]
  - Atrial tachycardia [Not Recovered/Not Resolved]
  - Palpitations [Unknown]
  - Hypomagnesaemia [Recovered/Resolved]
  - Abdominal discomfort [Unknown]
  - Nausea [Unknown]
  - Vomiting [Unknown]
  - Arrhythmia [Unknown]
  - Toxicity to various agents [Recovered/Resolved]
  - Drug interaction [Unknown]
